FAERS Safety Report 10948289 (Version 3)
Quarter: 2015Q1

REPORT INFORMATION
  Report Type: Spontaneous
  Country: DE (occurrence: DE)
  Receive Date: 20150324
  Receipt Date: 20150327
  Transmission Date: 20150721
  Serious: Yes (Hospitalization, Other)
  Sender: FDA-Public Use
  Company Number: DE-BRISTOL-MYERS SQUIBB COMPANY-BMS-2015-015965

PATIENT
  Sex: Female

DRUGS (3)
  1. ELIQUIS [Interacting]
     Active Substance: APIXABAN
     Dosage: SEE ORIGINAL CASE
  2. MORPHINE [Concomitant]
     Active Substance: MORPHINE
     Route: 065
  3. ELIQUIS [Suspect]
     Active Substance: APIXABAN
     Indication: CEREBROVASCULAR ACCIDENT PROPHYLAXIS
     Dosage: 2.5 MG, BID
     Route: 065
     Dates: end: 20150310

REACTIONS (3)
  - Anxiety [Not Recovered/Not Resolved]
  - Urinary tract infection [Unknown]
  - Lung infection [Unknown]
